FAERS Safety Report 5259770-5 (Version None)
Quarter: 2007Q1

REPORT INFORMATION
  Report Type: 
  Country: None (occurrence: None)
  Receive Date: 20070309
  Receipt Date: 20070227
  Transmission Date: 20070707
  Serious: Yes (Hospitalization)
  Sender: FDA-Public Use
  Company Number: JP-PFIZER INC-2007011716

PATIENT
  Sex: Male
  Weight: 58 kg

DRUGS (5)
  1. ZOLOFT [Suspect]
     Indication: DEPRESSION
     Dosage: DAILY DOSE:75MG
     Route: 048
  2. LUDIOMIL [Suspect]
     Indication: DEPRESSION
     Dosage: DAILY DOSE:30MG
     Route: 048
     Dates: start: 20061014, end: 20061027
  3. ANAFRANIL [Concomitant]
     Dosage: DAILY DOSE:30MG
     Route: 048
  4. NOCBIN [Concomitant]
     Route: 048
     Dates: start: 20060731, end: 20070126
  5. FLUNITRAZEPAM [Concomitant]
     Route: 048
     Dates: start: 20060731

REACTIONS (2)
  - FALL [None]
  - GAIT DISTURBANCE [None]
